FAERS Safety Report 23432989 (Version 2)
Quarter: 2025Q1

REPORT INFORMATION
  Report Type: Spontaneous
  Country: US (occurrence: US)
  Receive Date: 20240123
  Receipt Date: 20250102
  Transmission Date: 20250409
  Serious: No
  Sender: SANOFI AVENTIS
  Company Number: US-SA-SAC20240119000426

PATIENT
  Age: 59 Year
  Sex: Female

DRUGS (25)
  1. AUBAGIO [Suspect]
     Active Substance: TERIFLUNOMIDE
     Indication: Product used for unknown indication
     Route: 065
  2. LEFLUNOMIDE [Suspect]
     Active Substance: LEFLUNOMIDE
     Indication: Psoriatic arthropathy
  3. AMOXICILLIN [Suspect]
     Active Substance: AMOXICILLIN
  4. NORFLOXACIN [Suspect]
     Active Substance: NORFLOXACIN
  5. KESIMPTA [Suspect]
     Active Substance: OFATUMUMAB
     Indication: Multiple sclerosis
     Route: 058
  6. OCREVUS [Suspect]
     Active Substance: OCRELIZUMAB
     Indication: Product used for unknown indication
  7. PENICILLIN G SODIUM [Suspect]
     Active Substance: PENICILLIN G SODIUM
  8. AMOXICILLIN\CLAVULANATE POTASSIUM [Suspect]
     Active Substance: AMOXICILLIN\CLAVULANATE POTASSIUM
     Indication: Product used for unknown indication
  9. OZEMPIC [Concomitant]
     Active Substance: SEMAGLUTIDE
  10. MAGNESIUM [Concomitant]
     Active Substance: MAGNESIUM
  11. BACLOFEN [Concomitant]
     Active Substance: BACLOFEN
  12. TIZANIDINE HYDROCHLORIDE [Concomitant]
     Active Substance: TIZANIDINE HYDROCHLORIDE
  13. METFORMIN HYDROCHLORIDE [Concomitant]
     Active Substance: METFORMIN HYDROCHLORIDE
  14. CARBAMAZEPINE [Concomitant]
     Active Substance: CARBAMAZEPINE
  15. .ALPHA.-TOCOPHEROL [Concomitant]
     Active Substance: .ALPHA.-TOCOPHEROL
  16. DIFLUCAN [Concomitant]
     Active Substance: FLUCONAZOLE
  17. DUONEB [Concomitant]
     Active Substance: ALBUTEROL SULFATE\IPRATROPIUM BROMIDE
  18. FIORICET [Concomitant]
     Active Substance: ACETAMINOPHEN\BUTALBITAL\CAFFEINE
  19. HYOSCYAMINE [Concomitant]
     Active Substance: HYOSCYAMINE
  20. TOPROL XL [Concomitant]
     Active Substance: METOPROLOL SUCCINATE
  21. TRAZODONE HCL [Concomitant]
     Active Substance: TRAZODONE HYDROCHLORIDE
  22. LIPITOR [Concomitant]
     Active Substance: ATORVASTATIN CALCIUM
  23. PAROXETINE [Concomitant]
     Active Substance: PAROXETINE
  24. SPIRONOLACTONE [Concomitant]
     Active Substance: SPIRONOLACTONE
  25. POTASSIUM [Concomitant]
     Active Substance: POTASSIUM

REACTIONS (4)
  - Hypersensitivity [Unknown]
  - Injection site rash [Unknown]
  - Back pain [Unknown]
  - Headache [Unknown]
